FAERS Safety Report 9145556 (Version 2)
Quarter: 2014Q1

REPORT INFORMATION
  Report Type: Spontaneous
  Country: US (occurrence: US)
  Receive Date: 20130307
  Receipt Date: 20140224
  Transmission Date: 20141002
  Serious: No
  Sender: FDA-Public Use
  Company Number: US-PFIZER INC-2013075976

PATIENT
  Sex: 0

DRUGS (1)
  1. VIAGRA [Suspect]
     Dosage: 100 MG, UNK

REACTIONS (2)
  - Hypersensitivity [Unknown]
  - Drug dispensing error [Unknown]
